FAERS Safety Report 6397892-6 (Version None)
Quarter: 2009Q4

REPORT INFORMATION
  Report Type: 
  Country: None (occurrence: None)
  Receive Date: 20091013
  Receipt Date: 20091001
  Transmission Date: 20100525
  Serious: Yes (Hospitalization, Other)
  Sender: FDA-Public Use
  Company Number: CA-CELGENEUS-028-21880-09100200

PATIENT
  Sex: Female

DRUGS (1)
  1. REVLIMID [Suspect]
     Indication: DRUG USE FOR UNKNOWN INDICATION
     Route: 048

REACTIONS (3)
  - CELLULITIS [None]
  - HAND-FOOT-AND-MOUTH DISEASE [None]
  - RASH PRURITIC [None]
